FAERS Safety Report 9970074 (Version 1)
Quarter: 2014Q1

REPORT INFORMATION
  Report Type: Spontaneous
  Country: ES (occurrence: None)
  Receive Date: 20140304
  Receipt Date: 20140304
  Transmission Date: 20141002
  Serious: Yes (Hospitalization)
  Sender: FDA-Public Use
  Company Number: DSM-2014-00177

PATIENT
  Age: 79 Year
  Sex: Female

DRUGS (14)
  1. BALZAK (OLMESARTAN MEDOXOMIL, AMLODIPINE BESILATE) (TABLET) (OLMESARTAN MEDOXOMIL, AMLODIPINE BESILATE) [Suspect]
     Indication: HYPERTENSION
     Route: 048
     Dates: start: 201203, end: 20130415
  2. GENTAMICIN [Suspect]
     Indication: SKIN ULCER
     Route: 048
     Dates: start: 20130406, end: 20130412
  3. CEFUROXIME [Suspect]
     Indication: LARYNGITIS
     Route: 048
     Dates: start: 20130327, end: 20130408
  4. NAPROXEN [Suspect]
     Indication: PAIN
     Route: 048
     Dates: start: 20130408, end: 20130415
  5. SIMVASTATIN (SIMVASTATIN) [Concomitant]
  6. OMEPRAZOLE (OMEPRAZOLE) [Concomitant]
  7. NITRENDIPINE [Concomitant]
  8. ACETAMINOPHEN [Concomitant]
  9. FOLI DOCE (FOLIC ACID, CYANOCOBALAMIN) (FOLIC ACID, CYANOCOBALAMIN) [Concomitant]
  10. LORAZEPAM (LORAZEPAM) [Concomitant]
  11. SERETIDE [Concomitant]
  12. ATROVENT [Concomitant]
  13. FERO GRADUMET [Concomitant]
  14. LEVOTHROID [Concomitant]

REACTIONS (2)
  - Renal failure acute [None]
  - Hyperkalaemia [None]
